FAERS Safety Report 21025695 (Version 5)
Quarter: 2025Q1

REPORT INFORMATION
  Report Type: Spontaneous
  Country: US (occurrence: US)
  Receive Date: 20220630
  Receipt Date: 20250115
  Transmission Date: 20250409
  Serious: Yes (Other)
  Sender: UNITED THERAPEUTICS
  Company Number: US-UNITED THERAPEUTICS-UNT-2022-013736

PATIENT
  Age: 5 Year
  Sex: Female
  Weight: 38.789 kg

DRUGS (18)
  1. REMODULIN [Suspect]
     Active Substance: TREPROSTINIL
     Indication: Pulmonary arterial hypertension
  2. REMODULIN [Suspect]
     Active Substance: TREPROSTINIL
  3. REMODULIN [Suspect]
     Active Substance: TREPROSTINIL
  4. REMODULIN [Suspect]
     Active Substance: TREPROSTINIL
  5. REMODULIN [Suspect]
     Active Substance: TREPROSTINIL
  6. REMODULIN [Suspect]
     Active Substance: TREPROSTINIL
  7. REMODULIN [Suspect]
     Active Substance: TREPROSTINIL
  8. REMODULIN [Suspect]
     Active Substance: TREPROSTINIL
  9. ORENITRAM [Suspect]
     Active Substance: TREPROSTINIL
     Indication: Pulmonary arterial hypertension
  10. ORENITRAM [Suspect]
     Active Substance: TREPROSTINIL
  11. TADALAFIL [Concomitant]
     Active Substance: TADALAFIL
     Indication: Pulmonary arterial hypertension
     Dosage: 30 MG, QD
     Dates: start: 201608
  12. AMBRISENTAN [Concomitant]
     Active Substance: AMBRISENTAN
     Indication: Pulmonary arterial hypertension
     Dosage: 10 MG, QD
     Dates: start: 20180313
  13. IBUPROFEN [Concomitant]
     Active Substance: IBUPROFEN
     Indication: Infusion site pain
  14. IBUPROFEN [Concomitant]
     Active Substance: IBUPROFEN
     Indication: Pyrexia
  15. LORATADINE [Concomitant]
     Active Substance: LORATADINE
     Indication: Infusion site discomfort
  16. SELEXIPAG [Concomitant]
     Active Substance: SELEXIPAG
     Indication: Pulmonary arterial hypertension
  17. CHILDREN^S MULTIVITAMIN [Concomitant]
     Indication: Product used for unknown indication
  18. SILDENAFIL [Concomitant]
     Active Substance: SILDENAFIL
     Indication: Pulmonary arterial hypertension

REACTIONS (16)
  - Syncope [Unknown]
  - Right ventricular systolic pressure increased [Recovered/Resolved]
  - Dyspnoea exertional [Recovering/Resolving]
  - Palpitations [Recovering/Resolving]
  - Infusion site pain [Not Recovered/Not Resolved]
  - Therapy non-responder [Recovering/Resolving]
  - Dyspnoea [Recovered/Resolved]
  - Infusion site discomfort [Not Recovered/Not Resolved]
  - Pyrexia [Recovered/Resolved]
  - Right ventricular dilatation [Recovered/Resolved]
  - Right ventricular hypertrophy [Unknown]
  - Anaemia [Unknown]
  - Thyroxine increased [Unknown]
  - Antinuclear antibody positive [Unknown]
  - Forced expiratory volume decreased [Unknown]
  - Forced vital capacity decreased [Unknown]

NARRATIVE: CASE EVENT DATE: 20140901
